FAERS Safety Report 16290726 (Version 1)
Quarter: 2019Q2

REPORT INFORMATION
  Report Type: Spontaneous
  Country: US (occurrence: US)
  Receive Date: 20190404
  Receipt Date: 20190404
  Transmission Date: 20190711
  Serious: No
  Sender: FDA-Public Use
  Company Number: None

PATIENT
  Age: 40 Year
  Sex: Female
  Weight: 76.8 kg

DRUGS (1)
  1. OXYMETAZOLINE [Suspect]
     Active Substance: OXYMETAZOLINE
     Indication: SINUS OPERATION
     Route: 045
     Dates: start: 20190318

REACTIONS (3)
  - Product substitution issue [None]
  - Burning sensation [None]
  - Nasal discomfort [None]

NARRATIVE: CASE EVENT DATE: 20190318
